FAERS Safety Report 13330391 (Version 1)
Quarter: 2017Q1

REPORT INFORMATION
  Report Type: Spontaneous
  Country: JP (occurrence: JP)
  Receive Date: 20170314
  Receipt Date: 20170314
  Transmission Date: 20170428
  Serious: Yes (Hospitalization)
  Sender: FDA-Public Use
  Company Number: JP-ROCHE-1896183

PATIENT
  Sex: Female

DRUGS (1)
  1. ACTEMRA [Suspect]
     Active Substance: TOCILIZUMAB
     Indication: SYSTEMIC SCLERODERMA
     Dosage: DOSAGE IS UNCERTAIN.
     Route: 041
     Dates: start: 20160202

REACTIONS (3)
  - Pleural infection bacterial [Recovered/Resolved]
  - Off label use [Unknown]
  - Pleurisy [Unknown]

NARRATIVE: CASE EVENT DATE: 2017
